FAERS Safety Report 13020073 (Version 1)
Quarter: 2016Q4

REPORT INFORMATION
  Report Type: Spontaneous
  Country: None (occurrence: US)
  Receive Date: 20161212
  Receipt Date: 20161212
  Transmission Date: 20170207
  Serious: No
  Sender: FDA-Public Use
  Company Number: US-NOVOPROD-510306

PATIENT
  Age: 76 Year
  Sex: Male

DRUGS (3)
  1. NOVOLIN R [Suspect]
     Active Substance: INSULIN HUMAN
     Indication: TYPE 1 DIABETES MELLITUS
     Dosage: UNK
     Route: 058
  2. NOVOLIN R [Suspect]
     Active Substance: INSULIN HUMAN
     Dosage: UNK
     Route: 058
  3. NOVOLIN R [Suspect]
     Active Substance: INSULIN HUMAN
     Dosage: UNK
     Route: 058

REACTIONS (5)
  - Blood glucose increased [Recovered/Resolved]
  - Abnormal behaviour [Recovered/Resolved]
  - Product quality issue [Recovered/Resolved]
  - Glycosylated haemoglobin increased [Unknown]
  - Drug ineffective [Recovered/Resolved]
